FAERS Safety Report 20490515 (Version 4)
Quarter: 2022Q2

REPORT INFORMATION
  Report Type: Spontaneous
  Country: JP (occurrence: JP)
  Receive Date: 20220218
  Receipt Date: 20220419
  Transmission Date: 20220721
  Serious: Yes (Other)
  Sender: FDA-Public Use
  Company Number: JP-MSD-M2022-05889

PATIENT
  Age: 80 Year
  Sex: Male

DRUGS (2)
  1. MOLNUPIRAVIR [Suspect]
     Active Substance: MOLNUPIRAVIR
     Indication: COVID-19 treatment
     Dosage: 800 MILLIGRAM, TWICE A DAY
     Route: 048
     Dates: start: 20220210, end: 20220213
  2. VILDAGLIPTIN [Concomitant]
     Active Substance: VILDAGLIPTIN
     Indication: Diabetes mellitus
     Dosage: 50 MILLIGRAM, BID
     Route: 048

REACTIONS (3)
  - Syncope [Recovering/Resolving]
  - Diarrhoea [Unknown]
  - Nausea [Not Recovered/Not Resolved]

NARRATIVE: CASE EVENT DATE: 20220212
